FAERS Safety Report 13852302 (Version 1)
Quarter: 2017Q3

REPORT INFORMATION
  Report Type: Spontaneous
  Country: US (occurrence: US)
  Receive Date: 20170809
  Receipt Date: 20170809
  Transmission Date: 20171127
  Serious: No
  Sender: FDA-Public Use
  Company Number: US-ROCHE-632696

PATIENT
  Age: 71 Year
  Sex: Female

DRUGS (5)
  1. CITRACAL [Concomitant]
     Active Substance: CALCIUM CITRATE
     Route: 065
  2. VITAMIN C [Concomitant]
     Active Substance: ASCORBIC ACID
     Route: 065
  3. ASA [Concomitant]
     Active Substance: ASPIRIN
     Route: 065
  4. BONIVA [Suspect]
     Active Substance: IBANDRONATE SODIUM
     Indication: OSTEOPOROSIS
     Route: 065
     Dates: start: 200808, end: 200902
  5. PHENOBARBITAL. [Concomitant]
     Active Substance: PHENOBARBITAL
     Route: 065

REACTIONS (2)
  - Nail ridging [Unknown]
  - Nail disorder [Unknown]

NARRATIVE: CASE EVENT DATE: 200811
